FAERS Safety Report 10764518 (Version 1)
Quarter: 2015Q1

REPORT INFORMATION
  Report Type: Spontaneous
  Country: PL (occurrence: PL)
  Receive Date: 20150205
  Receipt Date: 20150205
  Transmission Date: 20150721
  Serious: Yes (Other)
  Sender: FDA-Public Use
  Company Number: PL-ROCHE-1530923

PATIENT
  Age: 74 Year
  Sex: Male

DRUGS (1)
  1. CELLCEPT [Suspect]
     Active Substance: MYCOPHENOLATE MOFETIL\MYCOPHENOLATE MOFETIL HYDROCHLORIDE
     Indication: HEART TRANSPLANT
     Route: 065

REACTIONS (8)
  - Bedridden [Unknown]
  - Cerebrovascular accident [Unknown]
  - Metastatic neoplasm [Unknown]
  - Motor dysfunction [Unknown]
  - Transient ischaemic attack [Unknown]
  - Dysphagia [Unknown]
  - Vomiting [Unknown]
  - Hepatic function abnormal [Unknown]

NARRATIVE: CASE EVENT DATE: 20150129
